FAERS Safety Report 10197283 (Version 1)
Quarter: 2014Q2

REPORT INFORMATION
  Report Type: Spontaneous
  Country: RU (occurrence: RU)
  Receive Date: 20140527
  Receipt Date: 20140527
  Transmission Date: 20141212
  Serious: Yes (Hospitalization)
  Sender: FDA-Public Use
  Company Number: RU-VIIV HEALTHCARE LIMITED-B0996423A

PATIENT
  Sex: Female

DRUGS (6)
  1. ZIAGEN [Suspect]
     Indication: HIV INFECTION
     Route: 065
  2. LAMIVUDINE-HIV [Suspect]
     Indication: HIV INFECTION
     Route: 065
  3. REYATAZ [Suspect]
     Indication: HIV INFECTION
     Route: 065
  4. RITONAVIR [Suspect]
     Indication: HIV INFECTION
     Route: 065
  5. KIVEXA [Suspect]
     Indication: HIV INFECTION
     Dosage: 1TAB PER DAY
     Route: 065
  6. STOCRIN [Suspect]
     Indication: HIV INFECTION
     Dosage: 1TAB PER DAY
     Route: 065

REACTIONS (5)
  - Vomiting [Unknown]
  - Diarrhoea [Unknown]
  - Gastroenteritis [Unknown]
  - Abdominal pain [Unknown]
  - Drug hypersensitivity [Unknown]
